FAERS Safety Report 16462823 (Version 2)
Quarter: 2019Q3

REPORT INFORMATION
  Report Type: Spontaneous
  Country: US (occurrence: US)
  Receive Date: 20190621
  Receipt Date: 20190911
  Transmission Date: 20191004
  Serious: No
  Sender: FDA-Public Use
  Company Number: US-UNITED THERAPEUTICS-UNT-2019-010616

PATIENT
  Sex: Female
  Weight: 51.25 kg

DRUGS (2)
  1. REVATIO [Concomitant]
     Active Substance: SILDENAFIL CITRATE
     Indication: PRODUCT USED FOR UNKNOWN INDICATION
     Route: 065
  2. REMODULIN [Suspect]
     Active Substance: TREPROSTINIL
     Indication: PULMONARY ARTERIAL HYPERTENSION
     Dosage: 0.027 ?G/KG, CONTINUING
     Route: 058
     Dates: start: 20171214, end: 2019

REACTIONS (3)
  - Infusion site pain [Recovered/Resolved]
  - Infusion site erythema [Unknown]
  - Complication of device removal [Unknown]
